FAERS Safety Report 7783037-4 (Version None)
Quarter: 2011Q3

REPORT INFORMATION
  Report Type: 
  Country: None (occurrence: None)
  Receive Date: 20110928
  Receipt Date: 20110923
  Transmission Date: 20111222
  Serious: No
  Sender: FDA-Public Use
  Company Number: US-PFIZER INC-2011227012

PATIENT
  Sex: Female

DRUGS (1)
  1. PREMARIN [Suspect]
     Dosage: 0.625 MG, UNK
     Route: 048

REACTIONS (5)
  - INSOMNIA [None]
  - WEIGHT DECREASED [None]
  - NAUSEA [None]
  - HYPERHIDROSIS [None]
  - DEPRESSED MOOD [None]
